FAERS Safety Report 14480717 (Version 1)
Quarter: 2018Q1

REPORT INFORMATION
  Report Type: Spontaneous
  Country: CN (occurrence: CN)
  Receive Date: 20180202
  Receipt Date: 20180202
  Transmission Date: 20180509
  Serious: Yes (Disabling)
  Sender: FDA-Public Use
  Company Number: CN-PFIZER INC-2018044008

PATIENT
  Age: 87 Year
  Sex: Female
  Weight: 35 kg

DRUGS (1)
  1. LIPITOR [Suspect]
     Active Substance: ATORVASTATIN CALCIUM
     Indication: HYPERLIPIDAEMIA
     Dosage: 20 MG, ONCE A DAY
     Route: 048
     Dates: start: 20170804, end: 20170811

REACTIONS (1)
  - Myoglobinaemia [Recovering/Resolving]

NARRATIVE: CASE EVENT DATE: 20170811
